FAERS Safety Report 6825885-0 (Version None)
Quarter: 2010Q3

REPORT INFORMATION
  Report Type: 
  Country: None (occurrence: None)
  Receive Date: 20100709
  Receipt Date: 20100618
  Transmission Date: 20110219
  Serious: Yes (Other)
  Sender: FDA-Public Use
  Company Number: CA-SOLVAY-00210004197

PATIENT
  Age: 35 Year
  Sex: Female

DRUGS (4)
  1. NOVOBETAHISTINE [Concomitant]
     Indication: PRODUCT USED FOR UNKNOWN INDICATION
     Dosage: DAILY DOSE:  UNKNOWN
     Route: 065
  2. MULTI-VITAMIN [Concomitant]
     Indication: PRODUCT USED FOR UNKNOWN INDICATION
     Dosage: DAILY DOSE:  UNKNOWN
     Route: 065
  3. TYLENOL (CAPLET) [Concomitant]
     Indication: PRODUCT USED FOR UNKNOWN INDICATION
     Dosage: DAILY DOSE:  UNKNOWN
     Route: 065
  4. PROMETRIUM [Suspect]
     Indication: PRODUCT USED FOR UNKNOWN INDICATION
     Dosage: DAILY DOSE: 400 MILLIGRAM(S)
     Route: 048

REACTIONS (9)
  - ASTHENIA [None]
  - BLOOD GLUCOSE ABNORMAL [None]
  - BRADYPHRENIA [None]
  - DIZZINESS [None]
  - DYSARTHRIA [None]
  - HYPOTENSION [None]
  - HYPOTONIA [None]
  - MOVEMENT DISORDER [None]
  - SENSATION OF HEAVINESS [None]
